FAERS Safety Report 8396487 (Version 5)
Quarter: 2012Q4

REPORT INFORMATION
  Report Type: 
  Country: US (occurrence: US)
  Receive Date: 20120208
  Receipt Date: 20121218
  Transmission Date: 20130627
  Serious: Yes (Other)
  Sender: FDA-Public Use
  Company Number: US-PFIZER INC-2011286735

PATIENT
  Age: 52 Year
  Sex: Female
  Weight: 39.91 kg

DRUGS (13)
  1. LYRICA [Suspect]
     Indication: NERVE PAIN
     Dosage: 50 mg, 1x/day
     Route: 048
  2. LYRICA [Suspect]
     Indication: SPONDYLITIS
     Dosage: 50 mg, 3x/day
     Route: 048
     Dates: start: 201204, end: 20120613
  3. LYRICA [Suspect]
     Dosage: 50 mg, 4x/day
     Route: 048
     Dates: start: 20120614
  4. LYRICA [Suspect]
     Dosage: 150 mg, 2x/day
     Route: 048
  5. LYRICA [Suspect]
     Dosage: 100 mg, 2x/day
     Route: 048
  6. OXYCODONE [Concomitant]
     Indication: NERVE PAIN
     Dosage: UNK
  7. CLONAZEPAM [Concomitant]
     Indication: SEIZURES
     Dosage: UNK
  8. TRAZODONE [Concomitant]
     Indication: SLEEP PROBLEM
     Dosage: 100 mg, UNK
  9. METAXALONE [Concomitant]
     Indication: LUMBAR DISC DEGENERATION
     Dosage: UNK
  10. SOMA [Concomitant]
     Indication: CRAMPS OF LOWER EXTREMITIES
     Dosage: UNK
  11. ADDERALL [Concomitant]
     Dosage: UNK
  12. CLOZAPINE [Concomitant]
     Dosage: 2 mg, 2x/day
     Route: 048
  13. CALCIUM [Concomitant]
     Dosage: UNK

REACTIONS (19)
  - Scoliosis [Unknown]
  - Spondylolysis [Unknown]
  - Astigmatism [Unknown]
  - Visual impairment [Not Recovered/Not Resolved]
  - Hypertension [Unknown]
  - Neuralgia [Not Recovered/Not Resolved]
  - Body height decreased [Unknown]
  - Drug ineffective [Unknown]
  - Weight increased [Not Recovered/Not Resolved]
  - Musculoskeletal pain [Unknown]
  - Spinal pain [Not Recovered/Not Resolved]
  - Pain in extremity [Not Recovered/Not Resolved]
  - Myalgia [Unknown]
  - Neck pain [Unknown]
  - Antinuclear antibody positive [Unknown]
  - Rheumatoid factor decreased [Unknown]
  - Intentional drug misuse [Unknown]
  - Insomnia [Unknown]
  - Osteopenia [Unknown]
